FAERS Safety Report 4411442-2 (Version None)
Quarter: 2004Q2

REPORT INFORMATION
  Report Type: 
  Country: None (occurrence: None)
  Receive Date: 20040630
  Receipt Date: 20400519
  Transmission Date: 20050107
  Serious: No
  Sender: FDA-Public Use
  Company Number: 04P-163-0261368-00

PATIENT
  Age: 64 Year
  Sex: Female
  Weight: 71.6683 kg

DRUGS (8)
  1. HUMIRA [Suspect]
     Indication: RHEUMATOID ARTHRITIS
     Dosage: 40 MG, 1 IN 2 WK, SUBCUTANEOUS
     Route: 058
     Dates: start: 20030501
  2. CORED [Concomitant]
  3. LEVOTHYROXINE SODUIM [Concomitant]
  4. IRON [Concomitant]
  5. CALCIUM [Concomitant]
  6. AMIODARONE [Concomitant]
  7. RAMIPRIL [Concomitant]
  8. PREDNISONE [Concomitant]

REACTIONS (3)
  - INJECTION SITE ERYTHEMA [None]
  - PAIN [None]
  - SWELLING [None]
